FAERS Safety Report 8832840 (Version 1)
Quarter: 2012Q4

REPORT INFORMATION
  Report Type: 
  Country: JP (occurrence: JP)
  Receive Date: 20121010
  Receipt Date: 20121010
  Transmission Date: 20130627
  Serious: Yes (Life-Threatening, Hospitalization, Other)
  Sender: FDA-Public Use
  Company Number: JP-009507513-1210JPN003677

PATIENT
  Age: 77 Year
  Sex: Female
  Weight: 32 kg

DRUGS (4)
  1. FOSAMAC TABLETS 35MG [Suspect]
     Indication: OSTEOPOROSIS
     Dosage: 35 mg, qw
     Route: 048
     Dates: start: 20090512, end: 20110703
  2. FOSAMAC TABLETS-5 [Suspect]
     Indication: OSTEOPOROSIS
     Dosage: 5 mg, qd
     Route: 048
     Dates: start: 20090219, end: 20090511
  3. FEMARA [Suspect]
     Indication: BREAST CANCER
     Dosage: 2.5 mg, qd
     Route: 048
     Dates: start: 20080228, end: 20110703
  4. FEMARA [Suspect]
     Dosage: Daily dosage unknown
     Route: 048

REACTIONS (2)
  - Idiopathic thrombocytopenic purpura [Unknown]
  - Pancytopenia [Recovered/Resolved]
